FAERS Safety Report 20818434 (Version 2)
Quarter: 2022Q2

REPORT INFORMATION
  Report Type: Report from Study
  Country: CO (occurrence: CO)
  Receive Date: 20220512
  Receipt Date: 20220519
  Transmission Date: 20220721
  Serious: Yes (Hospitalization, Other)
  Sender: FDA-Public Use
  Company Number: CO-BAYER-2022A065280

PATIENT
  Age: 67 Year
  Sex: Male

DRUGS (1)
  1. NEXAVAR [Suspect]
     Active Substance: SORAFENIB
     Indication: Hepatic cancer metastatic
     Dosage: 800 MG, QD
     Route: 048
     Dates: start: 20211209, end: 202204

REACTIONS (9)
  - Hepatic cancer metastatic [None]
  - Anaemia [None]
  - Asthenia [None]
  - Depressed mood [None]
  - Malaise [None]
  - Loss of personal independence in daily activities [None]
  - Food refusal [None]
  - Skin lesion [None]
  - Pruritus [None]

NARRATIVE: CASE EVENT DATE: 20220401
